FAERS Safety Report 15041563 (Version 2)
Quarter: 2019Q1

REPORT INFORMATION
  Report Type: Spontaneous
  Country: US (occurrence: US)
  Receive Date: 20180621
  Receipt Date: 20190126
  Transmission Date: 20190417
  Serious: No
  Sender: FDA-Public Use
  Company Number: US-UNITED THERAPEUTICS-UNT-2018-008827

PATIENT
  Sex: Male

DRUGS (1)
  1. TYVASO [Suspect]
     Active Substance: TREPROSTINIL
     Indication: PULMONARY ARTERIAL HYPERTENSION
     Dosage: 84 ?G, QID
     Dates: start: 20170329

REACTIONS (3)
  - Cough [Unknown]
  - Dysphonia [Unknown]
  - Off label use [Unknown]

NARRATIVE: CASE EVENT DATE: 20180612
